FAERS Safety Report 8525295-4 (Version None)
Quarter: 2012Q3

REPORT INFORMATION
  Report Type: 
  Country: None (occurrence: None)
  Receive Date: 20120720
  Receipt Date: 20120718
  Transmission Date: 20120928
  Serious: Yes (Hospitalization, Other)
  Sender: FDA-Public Use
  Company Number: PHHY2012CA025108

PATIENT
  Sex: Male

DRUGS (4)
  1. GLYBURIDE [Concomitant]
     Dosage: 2 DF, DAILY
  2. SANDOSTATIN LAR [Suspect]
     Dosage: 30 MG, EVERY 4 WEEKS
     Dates: start: 20120124
  3. SANDOSTATIN LAR [Suspect]
     Indication: NEUROENDOCRINE TUMOUR
     Dosage: 30 MG, EVERY 4 WEEKS
     Route: 030
     Dates: start: 20111201
  4. METFORMIN HYDROCHLORIDE [Concomitant]

REACTIONS (8)
  - INTESTINAL OBSTRUCTION [None]
  - NEOPLASM MALIGNANT [None]
  - BLOOD CHROMOGRANIN A INCREASED [None]
  - HYPERGLYCAEMIA [None]
  - HYPOGLYCAEMIA [None]
  - ABDOMINAL PAIN [None]
  - CONSTIPATION [None]
  - MUSCLE INJURY [None]
